FAERS Safety Report 15720819 (Version 1)
Quarter: 2018Q4

REPORT INFORMATION
  Report Type: Report from Study
  Country: None (occurrence: US)
  Receive Date: 20181213
  Receipt Date: 20181213
  Transmission Date: 20190205
  Serious: Yes (Other)
  Sender: FDA-Public Use
  Company Number: US-ABBVIE-18S-163-2585737-00

PATIENT
  Age: 70 Year
  Sex: Male

DRUGS (1)
  1. CREON [Suspect]
     Active Substance: PANCRELIPASE AMYLASE\PANCRELIPASE LIPASE\PANCRELIPASE PROTEASE
     Indication: PRODUCT USED FOR UNKNOWN INDICATION
     Route: 048

REACTIONS (34)
  - Adenocarcinoma pancreas [Unknown]
  - Fatigue [Unknown]
  - Insomnia [Unknown]
  - Ascites [Unknown]
  - Splenomegaly [Unknown]
  - Decreased appetite [Unknown]
  - Hepatic function abnormal [Unknown]
  - Anaemia [Unknown]
  - Back pain [Unknown]
  - Diarrhoea [Unknown]
  - Adenocarcinoma [Unknown]
  - Prostatic specific antigen increased [Unknown]
  - Hypoacusis [Unknown]
  - Osteoarthritis [Unknown]
  - Back pain [Unknown]
  - Asthenia [Unknown]
  - Fibrin D dimer increased [Unknown]
  - Central venous catheterisation [Unknown]
  - Pancreatic mass [Unknown]
  - Angiopathy [Unknown]
  - Weight decreased [Unknown]
  - Back pain [Unknown]
  - Diverticulum [Unknown]
  - Asthenia [Unknown]
  - Hypokalaemia [Unknown]
  - Hyperlipidaemia [Unknown]
  - Flatulence [Unknown]
  - Diarrhoea [Unknown]
  - Decreased appetite [Unknown]
  - Abdominal pain lower [Unknown]
  - Thrombocytopenia [Unknown]
  - Sleep disorder [Unknown]
  - Spinal compression fracture [Unknown]
  - Diarrhoea [Unknown]

NARRATIVE: CASE EVENT DATE: 201803
